FAERS Safety Report 12174089 (Version 1)
Quarter: 2016Q1

REPORT INFORMATION
  Report Type: Spontaneous
  Country: US (occurrence: US)
  Receive Date: 20160314
  Receipt Date: 20160314
  Transmission Date: 20160526
  Serious: No
  Sender: FDA-Public Use
  Company Number: PHEH2016US005812

PATIENT
  Sex: Female

DRUGS (1)
  1. COSENTYX [Suspect]
     Active Substance: SECUKINUMAB
     Indication: PITYRIASIS RUBRA PILARIS
     Dosage: 300 MG, QMO
     Route: 058

REACTIONS (2)
  - Off label use [Unknown]
  - Psoriasis [Unknown]
